FAERS Safety Report 7247502-0 (Version None)
Quarter: 2011Q1

REPORT INFORMATION
  Report Type: 
  Country: None (occurrence: None)
  Receive Date: 20110127
  Receipt Date: 20110114
  Transmission Date: 20110831
  Serious: Yes (Death, Hospitalization, Other)
  Sender: FDA-Public Use
  Company Number: FR-ROCHE-745773

PATIENT
  Sex: Male
  Weight: 64 kg

DRUGS (9)
  1. PREDNISONE [Suspect]
     Dosage: DRUG REPORTED AS : CORTANCYL
     Route: 048
     Dates: start: 20100605, end: 20101230
  2. CYCLOSPORINE [Suspect]
     Dosage: DRUG REPORTED AS : NEORAL
     Route: 065
     Dates: start: 20101230
  3. MYCOPHENOLATE MOFETIL [Suspect]
     Route: 002
     Dates: start: 20100531, end: 20101230
  4. EVEROLIMUS [Suspect]
     Dosage: DRUG REPORTED AS : CERTICAN
     Route: 002
     Dates: start: 20100605, end: 20101230
  5. NEXIUM [Concomitant]
     Route: 048
     Dates: start: 20100607, end: 20110106
  6. LASIX [Concomitant]
     Route: 048
     Dates: start: 20100712, end: 20110106
  7. AMLOR [Concomitant]
     Dosage: REPORTED AS AMLOR, PER OSACTRIM, PO
     Route: 048
     Dates: start: 20100705, end: 20110106
  8. CARDENSIEL [Concomitant]
     Route: 048
     Dates: start: 20100601, end: 20110106
  9. METHYLPREDNISOLONE [Suspect]
     Dosage: DRUG REPORTED AS : SOLUMEDROL
     Route: 042
     Dates: start: 20101230

REACTIONS (8)
  - PSEUDOMONAL SEPSIS [None]
  - PLEURISY [None]
  - PLEURAL EFFUSION [None]
  - PNEUMONIA STAPHYLOCOCCAL [None]
  - LEUKOPENIA [None]
  - RESPIRATORY DISTRESS [None]
  - LUNG DISORDER [None]
  - SEPTIC SHOCK [None]
